FAERS Safety Report 18508043 (Version 1)
Quarter: 2020Q4

REPORT INFORMATION
  Report Type: Report from Study
  Country: US (occurrence: US)
  Receive Date: 20201116
  Receipt Date: 20201116
  Transmission Date: 20210114
  Serious: Yes (Other)
  Sender: FDA-Public Use
  Company Number: US-BAUSCH-BL-2020-033500

PATIENT
  Age: 77 Year
  Sex: Male
  Weight: 108.51 kg

DRUGS (9)
  1. LACTULOSE. [Suspect]
     Active Substance: LACTULOSE
     Indication: HEPATIC ENCEPHALOPATHY
     Dosage: 10 GRAM/15 ML AS DIRECTED
     Route: 048
  2. XIFAXAN [Suspect]
     Active Substance: RIFAXIMIN
     Indication: HEPATIC ENCEPHALOPATHY
     Route: 048
  3. GLUCOSAMINE (CHONDORITIN) [Concomitant]
     Indication: PRODUCT USED FOR UNKNOWN INDICATION
     Dosage: 500-400 MG
     Route: 048
  4. XIFAXAN [Suspect]
     Active Substance: RIFAXIMIN
     Indication: HEPATIC CIRRHOSIS
  5. CYANOCOBALAMIN. [Concomitant]
     Active Substance: CYANOCOBALAMIN
     Indication: PRODUCT USED FOR UNKNOWN INDICATION
     Route: 048
  6. OMEPRAZOLE. [Concomitant]
     Active Substance: OMEPRAZOLE
     Indication: PRODUCT USED FOR UNKNOWN INDICATION
     Route: 048
  7. BUPROPION HCL [Concomitant]
     Active Substance: BUPROPION HYDROCHLORIDE
     Indication: PRODUCT USED FOR UNKNOWN INDICATION
     Route: 048
  8. TORSEMIDE. [Concomitant]
     Active Substance: TORSEMIDE
     Indication: PRODUCT USED FOR UNKNOWN INDICATION
     Route: 048
  9. ASPIR 81 [Concomitant]
     Active Substance: ASPIRIN
     Indication: PRODUCT USED FOR UNKNOWN INDICATION
     Route: 048

REACTIONS (5)
  - Portal hypertension [Unknown]
  - Periarthritis [Unknown]
  - Arthritis [Unknown]
  - Cholelithiasis [Unknown]
  - Ammonia increased [Unknown]

NARRATIVE: CASE EVENT DATE: 202001
